FAERS Safety Report 7370326-0 (Version None)
Quarter: 2011Q1

REPORT INFORMATION
  Report Type: 
  Country: None (occurrence: None)
  Receive Date: 20110323
  Receipt Date: 20110317
  Transmission Date: 20110831
  Serious: Yes (Disabling, Other)
  Sender: FDA-Public Use
  Company Number: US-PFIZER INC-2011057217

PATIENT
  Sex: Female
  Weight: 47.619 kg

DRUGS (7)
  1. EFFEXOR XR [Suspect]
     Indication: PANIC ATTACK
  2. EFFEXOR XR [Suspect]
     Indication: ANXIETY DISORDER
  3. EFFEXOR XR [Suspect]
     Indication: DEPRESSION
     Dosage: 75 MG, 1X/DAY
  4. EFFEXOR XR [Suspect]
     Indication: FATIGUE
  5. ORTHO TRI-CYCLEN [Concomitant]
     Indication: CONTRACEPTION
     Dosage: UNK
  6. NEXIUM [Concomitant]
     Dosage: 40 MG, UNK
     Route: 048
  7. EFFEXOR XR [Suspect]
     Indication: INSOMNIA

REACTIONS (5)
  - ACTIVITIES OF DAILY LIVING IMPAIRED [None]
  - WITHDRAWAL SYNDROME [None]
  - DIZZINESS [None]
  - TREMOR [None]
  - HALLUCINATION [None]
